FAERS Safety Report 12014709 (Version 1)
Quarter: 2016Q1

REPORT INFORMATION
  Report Type: Report from Study
  Country: US (occurrence: US)
  Receive Date: 20160205
  Receipt Date: 20160205
  Transmission Date: 20160526
  Serious: No
  Sender: FDA-Public Use
  Company Number: US-AMGEN-USASL2015013511

PATIENT
  Age: 58 Year
  Sex: Female

DRUGS (26)
  1. NAVELBINE [Concomitant]
     Active Substance: VINORELBINE TARTRATE
     Dosage: 41 MG, 1 IN 1 WK
     Route: 042
  2. POTASSIUM CHLORIDE. [Concomitant]
     Active Substance: POTASSIUM CHLORIDE
     Indication: HYPOKALAEMIA
     Dosage: 20 MEQ, 1 IN 1 D
     Route: 048
  3. ZOMETA [Concomitant]
     Active Substance: ZOLEDRONIC ACID
     Dosage: 4 MG, UNK
     Route: 042
     Dates: start: 201108
  4. NEULASTA [Suspect]
     Active Substance: PEGFILGRASTIM
     Indication: PRODUCT USED FOR UNKNOWN INDICATION
     Dosage: 6 MG/KG, UNK
     Route: 058
  5. HERCEPTIN [Suspect]
     Active Substance: TRASTUZUMAB
     Dosage: 415 MG, UNK
     Route: 042
     Dates: start: 20120511
  6. PEPSIN [Concomitant]
     Active Substance: PEPSIN
     Dosage: 25 MG, UNK
     Route: 042
  7. HERCEPTIN [Suspect]
     Active Substance: TRASTUZUMAB
     Indication: METASTASES TO CENTRAL NERVOUS SYSTEM
     Dosage: 575 MG, 1 IN 3 WK
     Route: 042
     Dates: start: 20120420
  8. TAXOL [Concomitant]
     Active Substance: PACLITAXEL
     Dosage: 80 MG/M2, 1 IN 1 WK
     Dates: start: 20110103
  9. TAXOL [Concomitant]
     Active Substance: PACLITAXEL
     Dosage: 70 MUG/M2, 1 IN 1 WK
     Route: 042
  10. NAVELBINE [Concomitant]
     Active Substance: VINORELBINE TARTRATE
     Dosage: 42 MG, 1 IN 1 WK
     Dates: start: 20120420
  11. NAPROXEN. [Concomitant]
     Active Substance: NAPROXEN
     Dosage: 500 MG, 1 IN 1 D
  12. HERCEPTIN [Suspect]
     Active Substance: TRASTUZUMAB
     Indication: METASTASES TO LUNG
     Dosage: 135 MG, UNK
     Route: 042
     Dates: start: 20120420
  13. HERCEPTIN [Suspect]
     Active Substance: TRASTUZUMAB
     Indication: METASTASES TO BONE
     Dosage: 370 MG, UNK
     Route: 042
  14. PEPCID [Concomitant]
     Active Substance: FAMOTIDINE
     Dosage: UNK
  15. ZOFRAN [Concomitant]
     Active Substance: ONDANSETRON HYDROCHLORIDE
     Dosage: 8 MG, 1 IN 8 HR
  16. NEURONTIN [Concomitant]
     Active Substance: GABAPENTIN
     Dosage: 400 MG, 1 IN 2 D
  17. COMPAZINE [Concomitant]
     Active Substance: PROCHLORPERAZINE MALEATE
     Dosage: 10 MG, 1 IN 6 HR
  18. MAGNESIUM CHLORIDE. [Concomitant]
     Active Substance: MAGNESIUM CHLORIDE
     Dosage: 700 MEQ, UNK
     Route: 048
  19. BENADRYL [Concomitant]
     Active Substance: DIPHENHYDRAMINE HYDROCHLORIDE
     Dosage: 25 MG, UNK
     Route: 042
  20. HERCEPTIN [Suspect]
     Active Substance: TRASTUZUMAB
     Indication: BREAST CANCER
     Dosage: 2 MG/KG, 1 IN 1 WK
     Route: 042
     Dates: start: 20110103, end: 20110712
  21. HERCEPTIN [Suspect]
     Active Substance: TRASTUZUMAB
     Dosage: 570 MG, UNK
     Route: 042
  22. TAXOL [Concomitant]
     Active Substance: PACLITAXEL
     Dosage: 120 MG/M2, 1 IN 1 WK
  23. ZOFRAN [Concomitant]
     Active Substance: ONDANSETRON HYDROCHLORIDE
     Dosage: 16 MG, UNK
     Route: 042
  24. ALOXI [Concomitant]
     Active Substance: PALONOSETRON HYDROCHLORIDE
     Dosage: 0.25 MG, UNK
     Route: 042
  25. POTASSIUM CHLORIDE. [Concomitant]
     Active Substance: POTASSIUM CHLORIDE
     Dosage: 40 MEQ, UNK
     Route: 048
  26. GLIPIZIDE. [Concomitant]
     Active Substance: GLIPIZIDE
     Dosage: 5 MG, 1 IN 2 D

REACTIONS (13)
  - Oedema peripheral [Unknown]
  - Hypokalaemia [Unknown]
  - Disease progression [Unknown]
  - Herpes zoster [Unknown]
  - Sensory disturbance [Unknown]
  - Urinary tract infection [Unknown]
  - Fatigue [Unknown]
  - Micturition urgency [Unknown]
  - Decreased appetite [Unknown]
  - Hypotension [Unknown]
  - Disease recurrence [Unknown]
  - Pollakiuria [Unknown]
  - Headache [Unknown]
